FAERS Safety Report 18579959 (Version 2)
Quarter: 2020Q4

REPORT INFORMATION
  Report Type: Report from Study
  Country: FR (occurrence: FR)
  Receive Date: 20201204
  Receipt Date: 20201216
  Transmission Date: 20210114
  Serious: Yes (Other)
  Sender: FDA-Public Use
  Company Number: FR-PFIZER INC-2020474551

PATIENT
  Sex: Male
  Weight: 70 kg

DRUGS (3)
  1. METOJECT [Suspect]
     Active Substance: METHOTREXATE SODIUM
     Indication: RHEUMATOID ARTHRITIS
     Dosage: 15 MG, WEEKLY
     Dates: start: 2005, end: 20200922
  2. CEBUTID [Concomitant]
     Active Substance: FLURBIPROFEN
     Indication: PAIN
     Dosage: UNK
     Route: 048
     Dates: start: 2015
  3. TOFACITINIB CITRATE [Suspect]
     Active Substance: TOFACITINIB CITRATE
     Indication: RHEUMATOID ARTHRITIS
     Dosage: 5 MG, 2X/DAY
     Dates: start: 201909, end: 20200922

REACTIONS (1)
  - Monoclonal B-cell lymphocytosis [Not Recovered/Not Resolved]

NARRATIVE: CASE EVENT DATE: 2020
